FAERS Safety Report 16669576 (Version 1)
Quarter: 2019Q3

REPORT INFORMATION
  Report Type: Report from Study
  Country: ES (occurrence: ES)
  Receive Date: 20190805
  Receipt Date: 20190805
  Transmission Date: 20191004
  Serious: Yes (Other)
  Sender: FDA-Public Use
  Company Number: ES-MYLANLABS-2019M1072102

PATIENT
  Age: 7 Month
  Sex: Female

DRUGS (6)
  1. VANCOMICINA                        /00314401/ [Interacting]
     Active Substance: VANCOMYCIN
     Indication: INFECTION
     Dosage: 70 MILLIGRAM, Q8H
     Route: 042
     Dates: start: 20170704, end: 20170711
  2. FOSCARNET SODIO [Interacting]
     Active Substance: FOSCARNET SODIUM
     Indication: CYTOMEGALOVIRUS INFECTION
     Dosage: 300 MILLIGRAM, Q8H
     Route: 042
     Dates: start: 20170710, end: 20170713
  3. ESPIRONOLACTONA [Interacting]
     Active Substance: SPIRONOLACTONE
     Indication: HYPERTENSION
     Dosage: 10 MILLIGRAM, BID
     Route: 048
     Dates: start: 20170704
  4. AMLODIPINE [Suspect]
     Active Substance: AMLODIPINE BESYLATE
     Indication: HYPERTENSION
     Dosage: 1 MILLIGRAM, BID
     Route: 048
     Dates: start: 20170703
  5. ENALAPRIL [Interacting]
     Active Substance: ENALAPRIL
     Indication: HYPERTENSION
     Dosage: 1 MILLIGRAM, QD
     Route: 048
     Dates: start: 20170711, end: 20170714
  6. FUROSEMIDA                         /00032601/ [Interacting]
     Active Substance: FUROSEMIDE
     Indication: OEDEMA
     Route: 042
     Dates: start: 20170710, end: 20170713

REACTIONS (1)
  - Acute kidney injury [Recovered/Resolved]

NARRATIVE: CASE EVENT DATE: 20170712
